FAERS Safety Report 13602120 (Version 2)
Quarter: 2017Q3

REPORT INFORMATION
  Report Type: Report from Study
  Country: CO (occurrence: CO)
  Receive Date: 20170601
  Receipt Date: 20170801
  Transmission Date: 20171127
  Serious: Yes (Hospitalization, Other)
  Sender: FDA-Public Use
  Company Number: CO-ALEXION-A201703640

PATIENT
  Age: 39 Year
  Sex: Male
  Weight: 62 kg

DRUGS (3)
  1. SOLIRIS [Suspect]
     Active Substance: ECULIZUMAB
     Indication: HAEMOLYTIC URAEMIC SYNDROME
     Dosage: 900 MG, QW
     Route: 042
     Dates: start: 20160307, end: 20160328
  2. VANCOMYCIN [Concomitant]
     Active Substance: VANCOMYCIN
     Indication: PRODUCT USED FOR UNKNOWN INDICATION
     Dosage: UNK
     Route: 065
     Dates: start: 20170324, end: 20170402
  3. SOLIRIS [Suspect]
     Active Substance: ECULIZUMAB
     Dosage: 1200 MG, Q2W
     Route: 042
     Dates: start: 20160404

REACTIONS (10)
  - Necrosis [Unknown]
  - Respiratory distress [Unknown]
  - Coma [Unknown]
  - Meningococcal bacteraemia [Recovered/Resolved]
  - Septic shock [Recovered/Resolved]
  - Pyrexia [Unknown]
  - Infection [Unknown]
  - Skin ulcer [Not Recovered/Not Resolved]
  - Blood pressure decreased [Unknown]
  - Vasculitis [Not Recovered/Not Resolved]

NARRATIVE: CASE EVENT DATE: 20170324
